FAERS Safety Report 12226980 (Version 4)
Quarter: 2016Q2

REPORT INFORMATION
  Report Type: Report from Study
  Country: CA (occurrence: CA)
  Receive Date: 20160331
  Receipt Date: 20160621
  Transmission Date: 20160815
  Serious: Yes (Other)
  Sender: FDA-Public Use
  Company Number: CA-JNJFOC-20160211993

PATIENT
  Age: 34 Year
  Sex: Female
  Weight: 44 kg

DRUGS (3)
  1. REMICADE [Suspect]
     Active Substance: INFLIXIMAB
     Indication: COLITIS ULCERATIVE
     Route: 042
     Dates: start: 20160323
  2. REMICADE [Suspect]
     Active Substance: INFLIXIMAB
     Indication: COLITIS ULCERATIVE
     Route: 042
     Dates: start: 20091007
  3. REMICADE [Suspect]
     Active Substance: INFLIXIMAB
     Indication: COLITIS ULCERATIVE
     Route: 042
     Dates: start: 20160504

REACTIONS (9)
  - Haematochezia [Not Recovered/Not Resolved]
  - Product quality issue [Unknown]
  - Frequent bowel movements [Not Recovered/Not Resolved]
  - General physical health deterioration [Recovering/Resolving]
  - Nausea [Unknown]
  - Off label use [Unknown]
  - Drug intolerance [Recovered/Resolved]
  - Infusion related reaction [Unknown]
  - Product use issue [Unknown]

NARRATIVE: CASE EVENT DATE: 20091007
